FAERS Safety Report 10454968 (Version 2)
Quarter: 2014Q3

REPORT INFORMATION
  Report Type: Report from Study
  Country: MX (occurrence: MX)
  Receive Date: 20140915
  Receipt Date: 20140915
  Transmission Date: 20150326
  Serious: Yes (Other)
  Sender: FDA-Public Use
  Company Number: PHHY2014MX109147

PATIENT
  Age: 64 Year
  Sex: Female

DRUGS (10)
  1. CELEBREX [Concomitant]
     Active Substance: CELECOXIB
     Indication: ARTHRALGIA
     Dosage: 1 DF, DAILY
     Dates: start: 2008
  2. CALCIUM [Concomitant]
     Active Substance: CALCIUM
     Indication: BONE DISORDER
     Dosage: 1 DF, DAILY
     Dates: start: 201406
  3. METHOTREXATE [Concomitant]
     Active Substance: METHOTREXATE
     Indication: BONE DEFORMITY
     Dosage: 1 DF, QW4
     Dates: start: 1999
  4. APO-FOLIC ACID [Concomitant]
     Active Substance: FOLIC ACID
     Dosage: 1 DF, DAILY
  5. ACLASTA [Suspect]
     Active Substance: ZOLEDRONIC ACID
     Indication: OSTEOPOROSIS
     Dosage: 5MG/100ML, 1 APPLICATION EVERY YEAR
     Route: 042
     Dates: start: 20130720
  6. OMEPRAZOLE. [Concomitant]
     Active Substance: OMEPRAZOLE
     Indication: GASTRITIS PROPHYLAXIS
     Dosage: 1 DF, DAILY
     Dates: start: 1999
  7. LOSARTAN [Concomitant]
     Active Substance: LOSARTAN
     Indication: HYPERTENSION
     Dosage: 1 DF, DAILY
     Dates: start: 2010
  8. ACLASTA [Suspect]
     Active Substance: ZOLEDRONIC ACID
     Dosage: 5MG/100ML, 1 APPLICATION EVERY YEAR
     Route: 042
     Dates: start: 201407
  9. CALCITRIOL. [Concomitant]
     Active Substance: CALCITRIOL
     Indication: BONE DISORDER
     Dosage: 1 DF, DAILY
     Dates: start: 201406
  10. THIAMINE [Concomitant]
     Active Substance: THIAMINE
     Dosage: 1 DF, DAILY
     Dates: start: 201406

REACTIONS (9)
  - Arthralgia [Unknown]
  - Spinal pain [Unknown]
  - Dizziness [Recovered/Resolved]
  - Hypoaesthesia [Unknown]
  - Peripheral vascular disorder [Unknown]
  - Burning sensation [Unknown]
  - Chest pain [Recovered/Resolved]
  - Dysstasia [Recovered/Resolved]
  - Malaise [Unknown]

NARRATIVE: CASE EVENT DATE: 201405
